FAERS Safety Report 7246204-4 (Version None)
Quarter: 2011Q1

REPORT INFORMATION
  Report Type: 
  Country: None (occurrence: None)
  Receive Date: 20110126
  Receipt Date: 20110119
  Transmission Date: 20110831
  Serious: Yes (Hospitalization)
  Sender: FDA-Public Use
  Company Number: B0695292A

PATIENT
  Sex: Female

DRUGS (1)
  1. ARIXTRA [Suspect]
     Indication: THROMBOSIS PROPHYLAXIS
     Dosage: 1.5MG PER DAY
     Route: 058
     Dates: start: 20110115, end: 20110116

REACTIONS (4)
  - INTRA-ABDOMINAL HAEMORRHAGE [None]
  - PYREXIA [None]
  - HAEMORRHAGE SUBCUTANEOUS [None]
  - PURPURA [None]
